FAERS Safety Report 9486447 (Version 3)
Quarter: 2013Q3

REPORT INFORMATION
  Report Type: Report from Study
  Country: DE (occurrence: DE)
  Receive Date: 20130829
  Receipt Date: 20130916
  Transmission Date: 20140515
  Serious: Yes (Hospitalization)
  Sender: FDA-Public Use
  Company Number: DE-ROCHE-1266588

PATIENT
  Age: 54 Year
  Sex: Female
  Weight: 57.4 kg

DRUGS (5)
  1. BEVACIZUMAB [Suspect]
     Indication: OVARIAN CANCER
     Dosage: LAST DOSE PRIOR TO SAE ON 14/AUG/2013
     Route: 042
     Dates: start: 20130612
  2. CARBOPLATIN [Suspect]
     Indication: OVARIAN CANCER
     Dosage: LAST DOSE PRIOR TO SAE ON 14/AUG/2013 (DAILY DOSE AUC 5)
     Route: 042
     Dates: start: 20130612
  3. PACLITAXEL [Suspect]
     Indication: OVARIAN CANCER
     Dosage: LAST DOSE PRIOR TO SAE ON 14/AUG/2013
     Route: 042
     Dates: start: 20130612
  4. LAXOBERAL [Concomitant]
     Indication: CONSTIPATION
     Dosage: 15 DROPS ORALY
     Route: 048
     Dates: start: 20130506
  5. NOVALGIN [Concomitant]
     Indication: ABDOMINAL PAIN
     Route: 048
     Dates: start: 20130617

REACTIONS (1)
  - Abscess [Recovered/Resolved]
